FAERS Safety Report 9309524 (Version 1)
Quarter: 2013Q2

REPORT INFORMATION
  Report Type: Spontaneous
  Country: US (occurrence: US)
  Receive Date: 20130525
  Receipt Date: 20130525
  Transmission Date: 20140414
  Serious: Yes (Other)
  Sender: FDA-Public Use
  Company Number: US-BRISTOL-MYERS SQUIBB COMPANY-18584268

PATIENT
  Age: 66 Year
  Sex: Female

DRUGS (16)
  1. BYDUREON 2MG VIAL + SYRINGE [Suspect]
     Indication: INSULIN-REQUIRING TYPE 2 DIABETES MELLITUS
     Route: 058
     Dates: start: 20121219, end: 20130117
  2. LANTUS [Concomitant]
     Indication: INSULIN-REQUIRING TYPE 2 DIABETES MELLITUS
     Route: 058
  3. COLCHICINE [Concomitant]
     Indication: GOUT
     Route: 048
  4. LYRICA [Concomitant]
     Indication: CHRONIC FATIGUE SYNDROME
     Route: 048
  5. ACETAMINOPHEN + HYDROCODONE [Concomitant]
     Indication: PAIN
     Route: 048
  6. ATENOLOL [Concomitant]
     Indication: HYPERTENSION
     Route: 048
  7. CELEXA [Concomitant]
     Indication: DEPRESSION
     Route: 048
  8. FLEXERIL [Concomitant]
     Indication: MUSCLE SPASMS
     Route: 048
  9. LASIX                                   /USA/ [Concomitant]
     Indication: DIURETIC THERAPY
     Route: 048
  10. LISINOPRIL [Concomitant]
     Indication: PROPHYLAXIS
     Route: 048
  11. OMEPRAZOLE [Concomitant]
     Indication: DYSPEPSIA
     Route: 048
  12. SIMVASTATIN [Concomitant]
     Indication: BLOOD CHOLESTEROL INCREASED
     Route: 048
  13. PHENTERMINE [Concomitant]
     Indication: WEIGHT DECREASED
     Route: 048
  14. CYANOCOBALAMIN [Concomitant]
  15. GENTAMICIN SULFATE [Concomitant]
     Indication: EYE INFECTION
  16. DOXYCYCLINE [Concomitant]
     Indication: URINARY TRACT INFECTION
     Route: 048

REACTIONS (4)
  - Glomerular filtration rate decreased [Unknown]
  - Urinary tract infection [Not Recovered/Not Resolved]
  - Eye infection [Not Recovered/Not Resolved]
  - Off label use [Recovered/Resolved]
